FAERS Safety Report 6646287-6 (Version None)
Quarter: 2010Q1

REPORT INFORMATION
  Report Type: 
  Country: None (occurrence: None)
  Receive Date: 20100323
  Receipt Date: 20100311
  Transmission Date: 20100710
  Serious: Yes (Death, Hospitalization)
  Sender: FDA-Public Use
  Company Number: JP-BAYER-200913354BYL

PATIENT
  Age: 50 Year
  Sex: Male
  Weight: 48 kg

DRUGS (20)
  1. NEXAVAR [Suspect]
     Indication: RENAL CELL CARCINOMA
     Dosage: TOTAL DAILY DOSE: 800 MG  UNIT DOSE: 200 MG
     Route: 048
     Dates: start: 20090709, end: 20090722
  2. NEXAVAR [Suspect]
     Dosage: UNIT DOSE: 200 MG
     Route: 048
     Dates: start: 20090729, end: 20090806
  3. NEXAVAR [Suspect]
     Dosage: UNIT DOSE: 200 MG
     Route: 048
     Dates: start: 20090807, end: 20090827
  4. NEXAVAR [Suspect]
     Dosage: UNIT DOSE: 200 MG
     Route: 048
     Dates: start: 20090723, end: 20090727
  5. PROGRAF [Concomitant]
     Dosage: TAKING FOR ABOUT 5 YEARS
     Route: 048
  6. CELLCEPT [Concomitant]
     Dosage: TAKING FOR ABOUT 5 YEARS
     Route: 048
  7. ALLOPURINOL [Concomitant]
     Dosage: TAKING FOR ABOUT 5 YEARS
     Route: 048
  8. ACECOL [Concomitant]
     Dosage: TAKING FOR ABOUT 5 YEARS
     Route: 048
  9. MEDROL [Concomitant]
     Dosage: TAKING FOR ABOUT 5 YEARS
     Route: 048
  10. NU-LOTAN [Concomitant]
     Dosage: TAKING FOR ABOUT 5 YEARS
     Route: 048
  11. URALYT [Concomitant]
     Dosage: TAKING FOR ABOUT 5 YEARS
     Route: 048
  12. GASTROM [Concomitant]
     Dosage: TAKING FOR ABOUT 5 YEARS
     Route: 048
  13. LAC B [Concomitant]
     Dosage: TAKING FOR ABOUT 5 YEARS
     Route: 048
  14. SODIUM BICARBONATE [Concomitant]
     Dosage: TAKING FOR ABOUT 5 YEARS
     Route: 048
  15. HARNAL [Concomitant]
     Dosage: TAKING FOR ABOUT 5 YEARS
     Route: 048
  16. ONEALFA [Concomitant]
     Dosage: TAKING FOR ABOUT 5 YEARS
     Route: 048
  17. PARIET [Concomitant]
     Dosage: TAKING FOR ABOUT 5 YEARS
     Route: 048
  18. LOXONIN [Concomitant]
     Dosage: UNIT DOSE: 60 MG
     Route: 048
     Dates: start: 20090616, end: 20090910
  19. DECADRON [Concomitant]
     Route: 048
     Dates: start: 20090619, end: 20090910
  20. VESICARE [Concomitant]
     Route: 048
     Dates: start: 20090707, end: 20090910

REACTIONS (5)
  - DIARRHOEA [None]
  - DUODENAL ULCER [None]
  - FATIGUE [None]
  - GASTROINTESTINAL HAEMORRHAGE [None]
  - RENAL CELL CARCINOMA [None]
